FAERS Safety Report 11620808 (Version 1)
Quarter: 2015Q4

REPORT INFORMATION
  Report Type: Report from Study
  Country: JP (occurrence: JP)
  Receive Date: 20151012
  Receipt Date: 20151012
  Transmission Date: 20160304
  Serious: Yes (Death, Life-Threatening, Hospitalization, Other)
  Sender: FDA-Public Use
  Company Number: JP-GLAXOSMITHKLINE-B0667984A

PATIENT
  Age: 78 Year
  Sex: Female
  Weight: 50 kg

DRUGS (16)
  1. MEXITIL [Suspect]
     Active Substance: MEXILETINE HYDROCHLORIDE
     Indication: NEURALGIA
     Route: 048
     Dates: start: 20091002, end: 20091014
  2. MAGMITT [Concomitant]
     Active Substance: MAGNESIUM OXIDE
     Indication: CONSTIPATION
     Route: 048
     Dates: end: 20091120
  3. MEXITIL [Suspect]
     Active Substance: MEXILETINE HYDROCHLORIDE
     Indication: NEURALGIA
     Route: 048
     Dates: start: 20090907, end: 20091001
  4. TYKERB [Suspect]
     Active Substance: LAPATINIB DITOSYLATE
     Indication: BREAST CANCER
     Route: 048
     Dates: start: 20091015, end: 20091120
  5. MUCOSTA [Concomitant]
     Active Substance: REBAMIPIDE
     Indication: PAIN MANAGEMENT
     Route: 048
     Dates: end: 20091120
  6. GABAPEN [Concomitant]
     Active Substance: GABAPENTIN
     Indication: PAIN MANAGEMENT
     Route: 048
     Dates: end: 20091120
  7. CEROCRAL [Concomitant]
     Active Substance: IFENPRODIL
     Indication: PAIN MANAGEMENT
     Route: 048
     Dates: end: 20091120
  8. XELODA [Suspect]
     Active Substance: CAPECITABINE
     Route: 048
     Dates: start: 20091016, end: 20091030
  9. MEXITIL [Suspect]
     Active Substance: MEXILETINE HYDROCHLORIDE
     Indication: NEURALGIA
     Route: 048
     Dates: start: 20091015, end: 20091029
  10. HYPEN [Concomitant]
     Active Substance: ETODOLAC
     Indication: PAIN MANAGEMENT
     Route: 048
     Dates: end: 20091120
  11. DUROTEP [Concomitant]
     Active Substance: FENTANYL
     Indication: PAIN MANAGEMENT
     Route: 062
     Dates: end: 20091120
  12. OXINORM [Concomitant]
     Active Substance: OXYCODONE HYDROCHLORIDE
     Indication: PAIN MANAGEMENT
     Route: 048
     Dates: end: 20091120
  13. MEXITIL [Suspect]
     Active Substance: MEXILETINE HYDROCHLORIDE
     Indication: NEURALGIA
     Route: 048
     Dates: start: 20091030, end: 20091104
  14. RINDERON V [Concomitant]
     Active Substance: BETAMETHASONE VALERATE
     Indication: PAIN MANAGEMENT
     Route: 048
     Dates: end: 20091120
  15. OXYCONTIN [Concomitant]
     Active Substance: OXYCODONE HYDROCHLORIDE
     Indication: PAIN MANAGEMENT
     Route: 048
     Dates: end: 20091120
  16. MEXITIL [Suspect]
     Active Substance: MEXILETINE HYDROCHLORIDE
     Indication: NEURALGIA
     Route: 048
     Dates: start: 20091105, end: 20091109

REACTIONS (8)
  - Diarrhoea [Recovered/Resolved]
  - Tremor [Recovering/Resolving]
  - Hypocalcaemia [Recovered/Resolved]
  - Ileus [Not Recovered/Not Resolved]
  - Sepsis [Not Recovered/Not Resolved]
  - Hypokalaemia [Recovered/Resolved]
  - Drug level increased [Recovered/Resolved]
  - Erythema [Not Recovered/Not Resolved]

NARRATIVE: CASE EVENT DATE: 20091021
